FAERS Safety Report 4553301-0 (Version None)
Quarter: 2005Q1

REPORT INFORMATION
  Report Type: 
  Country: None (occurrence: None)
  Receive Date: 20050113
  Receipt Date: 20050103
  Transmission Date: 20050727
  Serious: Yes (Disabling)
  Sender: FDA-Public Use
  Company Number: 2004-123657-NL

PATIENT
  Age: 85 Year
  Sex: Female

DRUGS (6)
  1. MIRTAZAPINE [Suspect]
     Indication: DEPRESSION
     Dosage: 30 MG
     Route: 048
     Dates: start: 20041126
  2. CITALOPRAM HYDROBROMIDE [Suspect]
     Dosage: 20 MG
     Route: 048
     Dates: start: 20041120
  3. ALIMEMAZINE TARTRATE [Suspect]
     Indication: SLEEP DISORDER
     Dosage: 30
     Route: 048
  4. NICARDIPINE HYDROCHLORIDE [Concomitant]
  5. VALPROATE SODIUM [Concomitant]
  6. ENOXAPARIN SODIUM [Concomitant]

REACTIONS (1)
  - DYSKINESIA [None]
